FAERS Safety Report 12846082 (Version 4)
Quarter: 2017Q1

REPORT INFORMATION
  Report Type: Report from Study
  Country: GB (occurrence: GB)
  Receive Date: 20161014
  Receipt Date: 20170116
  Transmission Date: 20170428
  Serious: Yes (Other)
  Sender: FDA-Public Use
  Company Number: GB-ROCHE-1602751

PATIENT
  Sex: Male

DRUGS (2)
  1. ESBRIET [Suspect]
     Active Substance: PIRFENIDONE
     Route: 048
     Dates: end: 20150514
  2. ESBRIET [Suspect]
     Active Substance: PIRFENIDONE
     Indication: IDIOPATHIC PULMONARY FIBROSIS
     Route: 048
     Dates: start: 20150428

REACTIONS (13)
  - Decreased appetite [Unknown]
  - Viral infection [Unknown]
  - Cough [Unknown]
  - Productive cough [Unknown]
  - Weight decreased [Unknown]
  - Oxygen saturation decreased [Unknown]
  - Pharyngeal disorder [Unknown]
  - Dyspepsia [Recovering/Resolving]
  - Skin exfoliation [Recovered/Resolved]
  - Gastrooesophageal reflux disease [Unknown]
  - Decreased activity [Unknown]
  - Diarrhoea [Recovering/Resolving]
  - Dyspnoea [Unknown]
